FAERS Safety Report 25480310 (Version 1)
Quarter: 2025Q2

REPORT INFORMATION
  Report Type: Report from Study
  Country: FR (occurrence: FR)
  Receive Date: 20250625
  Receipt Date: 20250625
  Transmission Date: 20250717
  Serious: Yes (Other)
  Sender: ALNYLAM PHARMACEUTICALS
  Company Number: FR-ALNYLAM PHARMACEUTICALS, INC.-ALN-2024-006977

PATIENT

DRUGS (1)
  1. AMVUTTRA [Suspect]
     Active Substance: VUTRISIRAN
     Indication: Product used for unknown indication
     Route: 058
     Dates: start: 20240615, end: 20240615

REACTIONS (7)
  - Deafness [Unknown]
  - Deposit eye [Unknown]
  - Sensory loss [Unknown]
  - Gait disturbance [Unknown]
  - Balance disorder [Unknown]
  - Disease progression [Unknown]
  - Peripheral swelling [Unknown]
